FAERS Safety Report 9105017 (Version 2)
Quarter: 2013Q4

REPORT INFORMATION
  Report Type: Spontaneous
  Country: GB (occurrence: GB)
  Receive Date: 20130219
  Receipt Date: 20131008
  Transmission Date: 20140711
  Serious: Yes (Death, Other)
  Sender: FDA-Public Use
  Company Number: GB-ACCORD-016453

PATIENT
  Age: 9 Month
  Sex: Female
  Weight: 8.5 kg

DRUGS (6)
  1. LEVETIRACETAM [Suspect]
     Indication: EPILEPSY
     Route: 048
     Dates: start: 20120709, end: 20121128
  2. EPILIM [Suspect]
     Indication: CONVULSION
     Route: 048
     Dates: start: 20120718, end: 20121128
  3. PHENYTOIN [Suspect]
     Indication: STATUS EPILEPTICUS
     Dosage: 180 MG OVER 20 MINUTES
     Route: 042
     Dates: start: 20121128, end: 20121128
  4. MIDAZOLAM [Suspect]
     Indication: CONVULSION
     Dosage: 2.5MG AT 5 MINUTES AND 15 MINUTES
     Route: 002
     Dates: start: 20121128, end: 20121128
  5. PARACETAMOL [Concomitant]
  6. DIAZEPAM [Concomitant]
     Route: 054

REACTIONS (2)
  - Cardiac arrest [Fatal]
  - Respiratory acidosis [Not Recovered/Not Resolved]
